FAERS Safety Report 9858237 (Version 2)
Quarter: 2014Q1

REPORT INFORMATION
  Report Type: Spontaneous
  Country: FR (occurrence: FR)
  Receive Date: 20140131
  Receipt Date: 20140218
  Transmission Date: 20141002
  Serious: Yes (Hospitalization, Other)
  Sender: FDA-Public Use
  Company Number: FR-JNJFOC-20140106324

PATIENT
  Sex: Male

DRUGS (1)
  1. STELARA [Suspect]
     Indication: PSORIASIS
     Dosage: APPROXIMATE TOTAL NUMBERS OF INJECTIONS PATIENT RECEIVED WAS 1
     Route: 058
     Dates: start: 20130929, end: 20140114

REACTIONS (1)
  - Mediastinitis [Recovered/Resolved]
